FAERS Safety Report 22361563 (Version 1)
Quarter: 2023Q2

REPORT INFORMATION
  Report Type: Spontaneous
  Country: US (occurrence: None)
  Receive Date: 20230524
  Receipt Date: 20230524
  Transmission Date: 20230722
  Serious: Yes (Other)
  Sender: FDA-Public Use
  Company Number: None

PATIENT
  Age: 33 Year
  Sex: Female
  Weight: 99 kg

DRUGS (3)
  1. AMITRIPTYLINE HYDROCHLORIDE [Suspect]
     Active Substance: AMITRIPTYLINE HYDROCHLORIDE
     Indication: Headache
     Dates: start: 20230426, end: 20230503
  2. SERTRALINE [Concomitant]
     Active Substance: SERTRALINE HYDROCHLORIDE
  3. BUPROPION [Concomitant]
     Active Substance: BUPROPION

REACTIONS (2)
  - Tremor [None]
  - Drug interaction [None]

NARRATIVE: CASE EVENT DATE: 20230502
